FAERS Safety Report 7508687-1 (Version None)
Quarter: 2011Q2

REPORT INFORMATION
  Report Type: 
  Country: None (occurrence: None)
  Receive Date: 20110527
  Receipt Date: 20100709
  Transmission Date: 20111010
  Serious: No
  Sender: FDA-Public Use
  Company Number: A0869498A

PATIENT
  Age: 51 Year
  Sex: Male

DRUGS (1)
  1. VENTOLIN [Suspect]
     Dosage: 1PUFF FOUR TIMES PER DAY
     Route: 055
     Dates: start: 20091022

REACTIONS (2)
  - PRODUCT QUALITY ISSUE [None]
  - DRUG INEFFECTIVE [None]
